FAERS Safety Report 24936536 (Version 1)
Quarter: 2025Q1

REPORT INFORMATION
  Report Type: Spontaneous
  Country: US (occurrence: US)
  Receive Date: 20250206
  Receipt Date: 20250206
  Transmission Date: 20250409
  Serious: No
  Sender: COSETTE PHARMACEUTICALS INC
  Company Number: US-COSETTE-CP2025US000071

PATIENT
  Age: 69 Year
  Sex: Female
  Weight: 106 kg

DRUGS (3)
  1. WELCHOL [Suspect]
     Active Substance: COLESEVELAM HYDROCHLORIDE
     Indication: Colitis microscopic
     Route: 048
     Dates: start: 20250121
  2. WELCHOL [Suspect]
     Active Substance: COLESEVELAM HYDROCHLORIDE
     Indication: Bile acid malabsorption
     Route: 048
     Dates: start: 20250124
  3. BUDESONIDE [Concomitant]
     Active Substance: BUDESONIDE
     Indication: Product used for unknown indication
     Route: 065

REACTIONS (5)
  - Diarrhoea [Recovering/Resolving]
  - Flatulence [Recovering/Resolving]
  - Abdominal pain [Recovering/Resolving]
  - Gait disturbance [Recovering/Resolving]
  - Product use in unapproved indication [Unknown]

NARRATIVE: CASE EVENT DATE: 20250122
